FAERS Safety Report 4631499-3 (Version None)
Quarter: 2005Q2

REPORT INFORMATION
  Report Type: 
  Country: None (occurrence: None)
  Receive Date: 20050407
  Receipt Date: 20050405
  Transmission Date: 20051028
  Serious: Yes (Death)
  Sender: FDA-Public Use
  Company Number: 2005AP00575

PATIENT
  Age: 60 Year
  Sex: Female

DRUGS (8)
  1. IRESSA [Suspect]
     Indication: LUNG ADENOCARCINOMA
     Dosage: 250 MG DAILY PO
     Route: 048
     Dates: start: 20021101, end: 20030301
  2. IRESSA [Suspect]
     Indication: LUNG ADENOCARCINOMA
     Dosage: 250 MG DAILY PO
     Route: 048
     Dates: start: 20041125, end: 20041214
  3. CISPLATIN [Concomitant]
  4. DOCETAXEL [Concomitant]
  5. UFT [Concomitant]
  6. CARBOPLATIN [Concomitant]
  7. GEMCITABINE [Concomitant]
  8. RADIATION THERAPY [Concomitant]

REACTIONS (3)
  - ACUTE RESPIRATORY FAILURE [None]
  - DERMATITIS [None]
  - METASTASES TO CENTRAL NERVOUS SYSTEM [None]
